FAERS Safety Report 5348577-6 (Version None)
Quarter: 2007Q2

REPORT INFORMATION
  Report Type: 
  Country: None (occurrence: None)
  Receive Date: 20070606
  Receipt Date: 20070525
  Transmission Date: 20071010
  Serious: Yes (Other)
  Sender: FDA-Public Use
  Company Number: GB-PFIZER INC-2007044280

PATIENT
  Sex: Female

DRUGS (2)
  1. DEPO-PROVERA SUSPENSION/INJ [Suspect]
     Route: 030
  2. LITHIUM CARBONATE [Suspect]

REACTIONS (3)
  - AMENORRHOEA [None]
  - OLIGOMENORRHOEA [None]
  - SUICIDE ATTEMPT [None]
